FAERS Safety Report 9848244 (Version 1)
Quarter: 2014Q1

REPORT INFORMATION
  Report Type: Spontaneous
  Country: US (occurrence: None)
  Receive Date: 20140123
  Receipt Date: 20140123
  Transmission Date: 20141002
  Serious: Yes (Hospitalization)
  Sender: FDA-Public Use
  Company Number: None

PATIENT
  Age: 80 Year
  Sex: Male
  Weight: 98.4 kg

DRUGS (8)
  1. BACTRIM DS [Suspect]
     Indication: SINUSITIS
     Dosage: 1 TABLET BID ORAL
     Route: 048
     Dates: start: 20131225, end: 20140101
  2. SEPTRA [Concomitant]
  3. SIMVASTATIN [Concomitant]
  4. SAW PALMETTO [Concomitant]
  5. PERCOCET [Concomitant]
  6. NORCO [Concomitant]
  7. GLUCOSAMINE/CHONDROITIN [Concomitant]
  8. AMBIEN [Concomitant]

REACTIONS (4)
  - Encephalopathy [None]
  - Arthritis [None]
  - Aspartate aminotransferase increased [None]
  - Blood creatinine increased [None]
